FAERS Safety Report 8328507-5 (Version None)
Quarter: 2012Q2

REPORT INFORMATION
  Report Type: 
  Country: None (occurrence: None)
  Receive Date: 20120502
  Receipt Date: 20100723
  Transmission Date: 20120825
  Serious: No
  Sender: FDA-Public Use
  Company Number: US-TEVA-2010003913

PATIENT
  Age: 23 Year
  Sex: Female

DRUGS (4)
  1. NUVIGIL [Suspect]
     Indication: NARCOLEPSY
     Dosage: 250 MILLIGRAM;
     Route: 048
     Dates: start: 20090101
  2. PROZAC [Concomitant]
  3. ABILIFY [Concomitant]
  4. NEXIUM [Concomitant]

REACTIONS (1)
  - DRUG INEFFECTIVE [None]
